FAERS Safety Report 21397865 (Version 2)
Quarter: 2022Q4

REPORT INFORMATION
  Report Type: Report from Study
  Country: DE (occurrence: DE)
  Receive Date: 20220930
  Receipt Date: 20221011
  Transmission Date: 20230112
  Serious: Yes (Hospitalization)
  Sender: FDA-Public Use
  Company Number: DE-002147023-NVSC2022DE216585

PATIENT

DRUGS (2)
  1. RUXOLITINIB [Suspect]
     Active Substance: RUXOLITINIB
     Indication: Primary myelofibrosis
     Dosage: 30 MG PER DAY
     Route: 048
     Dates: start: 20121012
  2. RUXOLITINIB [Suspect]
     Active Substance: RUXOLITINIB
     Dosage: 5 MG PER DAY
     Route: 048
     Dates: start: 20130314, end: 20130328

REACTIONS (2)
  - Dyspnoea [Recovering/Resolving]
  - Respiratory failure [Recovering/Resolving]
